FAERS Safety Report 8380473-2 (Version None)
Quarter: 2012Q2

REPORT INFORMATION
  Report Type: 
  Country: None (occurrence: None)
  Receive Date: 20120523
  Receipt Date: 20120518
  Transmission Date: 20120825
  Serious: Yes (Other)
  Sender: FDA-Public Use
  Company Number: GB-GLAXOSMITHKLINE-B0783478A

PATIENT
  Age: 47 Year
  Sex: Female
  Weight: 75 kg

DRUGS (13)
  1. LANSOPRAZOLE [Concomitant]
     Dates: start: 20110928, end: 20120124
  2. PREGABALIN [Concomitant]
     Dates: start: 20111205, end: 20120102
  3. ROPINIROLE [Suspect]
     Dates: start: 20120105
  4. FLUTICASONE FUROATE [Concomitant]
     Dates: start: 20111129, end: 20120122
  5. ALBUTEROL [Concomitant]
     Dates: start: 20111129, end: 20120120
  6. CANDESARTAN CILEXETIL [Concomitant]
     Dates: start: 20111129, end: 20120124
  7. TRAMADOL HYDROCHLORIDE [Concomitant]
     Dates: start: 20111205, end: 20120204
  8. ROSUVASTATIN [Concomitant]
     Dates: start: 20111129, end: 20111227
  9. ACETAMINOPHEN [Concomitant]
     Dates: start: 20111205, end: 20120104
  10. BETAHISTINE [Concomitant]
     Dates: start: 20111129, end: 20120120
  11. CETIRIZINE [Concomitant]
     Dates: start: 20111129, end: 20120122
  12. ACETAMINOPHEN AND CODEINE PHOSPHATE [Concomitant]
     Dates: start: 20111130, end: 20111207
  13. GAVISCON [Concomitant]
     Dates: start: 20111129, end: 20120124

REACTIONS (3)
  - THINKING ABNORMAL [None]
  - VIOLENCE-RELATED SYMPTOM [None]
  - SELF-INJURIOUS IDEATION [None]
